FAERS Safety Report 21753116 (Version 1)
Quarter: 2022Q4

REPORT INFORMATION
  Report Type: Report from Study
  Country: MX (occurrence: MX)
  Receive Date: 20221220
  Receipt Date: 20221220
  Transmission Date: 20230113
  Serious: Yes (Death, Life-Threatening, Hospitalization)
  Sender: FDA-Public Use
  Company Number: MX-BRISTOL-MYERS SQUIBB COMPANY-2022-153882

PATIENT
  Age: 54 Year
  Sex: Male

DRUGS (13)
  1. POMALIDOMIDE [Suspect]
     Active Substance: POMALIDOMIDE
     Indication: Plasma cell myeloma refractory
     Dosage: 4.00 MG,(4.0 MG PO QD ON D1 TO D21); ORAL
     Route: 048
     Dates: start: 20220915, end: 20221005
  2. POMALIDOMIDE [Suspect]
     Active Substance: POMALIDOMIDE
     Dosage: 4.00 MG,(4.0 MG PO QD ON D1 TO D21); ORAL
     Route: 048
     Dates: start: 20221013, end: 20221020
  3. POMALIDOMIDE [Suspect]
     Active Substance: POMALIDOMIDE
     Dosage: 4.00 MG,(4.0 MG PO QD ON D1 TO D21); ORAL
     Route: 048
     Dates: start: 20221110
  4. BELANTAMAB MAFODOTIN [Suspect]
     Active Substance: BELANTAMAB MAFODOTIN
     Indication: Plasma cell myeloma refractory
     Dosage: 40.45 MG,(0.5 MG/KG), Q4W
     Route: 042
     Dates: start: 20220915, end: 20220915
  5. BELANTAMAB MAFODOTIN [Suspect]
     Active Substance: BELANTAMAB MAFODOTIN
     Dosage: 39.50 MG, Q4W
     Route: 042
     Dates: start: 20221013, end: 20221013
  6. BELANTAMAB MAFODOTIN [Suspect]
     Active Substance: BELANTAMAB MAFODOTIN
     Dosage: 38.50 MG, Q4W
     Route: 042
     Dates: start: 20221110, end: 20221110
  7. NIROGACESTAT [Suspect]
     Active Substance: NIROGACESTAT
     Indication: Plasma cell myeloma refractory
     Dosage: 1 DF, BID(100 MG PO BID, CONTINEOUSLY DOSED STARTING DAY -2 CYCLE 1 )
     Route: 048
     Dates: start: 20220913, end: 20220914
  8. NIROGACESTAT [Suspect]
     Active Substance: NIROGACESTAT
     Dosage: 1 DF, BID(100 MG PO BID, CONTINEOUSLY DOSED STARTING DAY -2 CYCLE 1 )
     Route: 048
     Dates: start: 20220915, end: 20221012
  9. NIROGACESTAT [Suspect]
     Active Substance: NIROGACESTAT
     Dosage: 1 DF, BID(100 MG PO BID, CONTINEOUSLY DOSED STARTING DAY -2 CYCLE 1 )
     Route: 048
     Dates: start: 20221013, end: 20221020
  10. NIROGACESTAT [Suspect]
     Active Substance: NIROGACESTAT
     Dosage: 1 DF, BID(100 MG PO BID, CONTINEOUSLY DOSED STARTING DAY -2 CYCLE 1 )
     Route: 048
     Dates: start: 20221110
  11. DEXAMETHASONE [Suspect]
     Active Substance: DEXAMETHASONE
     Indication: Plasma cell myeloma refractory
     Dosage: 40 MG, (QD - DAYS 1, 8,15, 22)
     Route: 048
     Dates: start: 20220915, end: 20221006
  12. DEXAMETHASONE [Suspect]
     Active Substance: DEXAMETHASONE
     Dosage: 40 MG, (QD - DAYS 1)
     Route: 048
     Dates: start: 20221013
  13. DEXAMETHASONE [Suspect]
     Active Substance: DEXAMETHASONE
     Dosage: 40 MG, (QD - DAYS 1)
     Route: 048
     Dates: start: 20221110

REACTIONS (1)
  - Dehydration [Fatal]

NARRATIVE: CASE EVENT DATE: 20221205
